FAERS Safety Report 6298212-8 (Version None)
Quarter: 2009Q3

REPORT INFORMATION
  Report Type: 
  Country: None (occurrence: None)
  Receive Date: 20090805
  Receipt Date: 20090729
  Transmission Date: 20100115
  Serious: Yes (Other)
  Sender: FDA-Public Use
  Company Number: ES-AVENTIS-200917863GDDC

PATIENT
  Age: 86 Year
  Sex: Female

DRUGS (4)
  1. LANTUS [Suspect]
     Route: 058
     Dates: start: 20070101
  2. BONIVA [Suspect]
     Indication: OSTEOPENIA
     Route: 048
     Dates: start: 20070501
  3. NOVONORM [Suspect]
     Route: 048
     Dates: start: 20070101
  4. ADIRO [Concomitant]
     Route: 048
     Dates: start: 20060101, end: 20081204

REACTIONS (1)
  - ISCHAEMIC STROKE [None]
